FAERS Safety Report 15501561 (Version 1)
Quarter: 2018Q4

REPORT INFORMATION
  Report Type: Spontaneous
  Country: US (occurrence: US)
  Receive Date: 20181015
  Receipt Date: 20181015
  Transmission Date: 20190205
  Serious: Yes (Hospitalization, Other)
  Sender: FDA-Public Use
  Company Number: US-ASTRAZENECA-2018SF32963

PATIENT
  Sex: Female

DRUGS (2)
  1. IMFINZI [Suspect]
     Active Substance: DURVALUMAB
     Indication: LUNG SQUAMOUS CELL CARCINOMA STAGE III
     Dosage: 10MG PER KG, EVERY TWO WEEKS
     Route: 042
     Dates: start: 20180718
  2. METOPROLOL SUCCINATE. [Suspect]
     Active Substance: METOPROLOL SUCCINATE
     Route: 048

REACTIONS (2)
  - Atrioventricular block complete [Unknown]
  - Lung squamous cell carcinoma stage III [Unknown]
